FAERS Safety Report 7745949 (Version 3)
Quarter: 2016Q3

REPORT INFORMATION
  Report Type: Spontaneous
  Country: JP (occurrence: JP)
  Receive Date: 20110103
  Receipt Date: 20160908
  Transmission Date: 20161109
  Serious: Yes (Hospitalization, Other)
  Sender: FDA-Public Use
  Company Number: JP-PFIZER INC-2010179554

PATIENT
  Age: 23 Year
  Sex: Male
  Weight: 54 kg

DRUGS (2)
  1. TAKEPRON [Suspect]
     Active Substance: LANSOPRAZOLE
     Dosage: 30 MG PER DAY
     Route: 065
  2. HYDROCORTISONE. [Suspect]
     Active Substance: HYDROCORTISONE
     Indication: HORMONE REPLACEMENT THERAPY
     Dosage: 30 MG, DAILY
     Route: 065

REACTIONS (2)
  - Portal venous gas [Recovered/Resolved]
  - Gastritis bacterial [Recovering/Resolving]
